FAERS Safety Report 4745490-X (Version None)
Quarter: 2005Q3

REPORT INFORMATION
  Report Type: 
  Country: None (occurrence: None)
  Receive Date: 20050811
  Receipt Date: 20050713
  Transmission Date: 20060218
  Serious: Yes (Hospitalization, Other)
  Sender: FDA-Public Use
  Company Number: US_0411108281

PATIENT
  Age: 46 Year
  Sex: Female
  Weight: 57 kg

DRUGS (6)
  1. HUMALOG [Suspect]
     Indication: DIABETES MELLITUS
     Dates: start: 20030101
  2. REGULAR ILETIN II [Suspect]
     Indication: DIABETES MELLITUS
  3. NPH ILETIN I (BEEF-PORK) [Suspect]
     Indication: DIABETES MELLITUS
  4. INSULIN [Suspect]
     Indication: DIABETES MELLITUS
  5. INSULIN GLARGINE [Concomitant]
  6. NOVOLIN N [Concomitant]

REACTIONS (12)
  - ANKLE FRACTURE [None]
  - BLOOD GLUCOSE DECREASED [None]
  - BLOOD GLUCOSE FLUCTUATION [None]
  - BLOOD GLUCOSE INCREASED [None]
  - CATARACT [None]
  - CONTUSION [None]
  - DIZZINESS [None]
  - FALL [None]
  - FEELING ABNORMAL [None]
  - RETINAL DETACHMENT [None]
  - RETINOPATHY [None]
  - VISUAL ACUITY REDUCED [None]
